FAERS Safety Report 20141903 (Version 1)
Quarter: 2021Q4

REPORT INFORMATION
  Report Type: Spontaneous
  Country: US (occurrence: US)
  Receive Date: 20211202
  Receipt Date: 20211202
  Transmission Date: 20220303
  Serious: No
  Sender: FDA-Public Use
  Company Number: US-009507513-2111USA003872

PATIENT
  Sex: Female

DRUGS (3)
  1. JANUVIA [Suspect]
     Active Substance: SITAGLIPTIN PHOSPHATE
     Indication: Diabetes mellitus
     Dosage: UNK
     Route: 048
  2. METFORMIN [Suspect]
     Active Substance: METFORMIN HYDROCHLORIDE
     Dosage: UNK
  3. GLIPIZIDE [Suspect]
     Active Substance: GLIPIZIDE
     Dosage: UNK

REACTIONS (4)
  - Fatigue [Unknown]
  - Flatulence [Unknown]
  - Abdominal pain upper [Unknown]
  - Headache [Unknown]
